FAERS Safety Report 10029515 (Version 1)
Quarter: 2014Q1

REPORT INFORMATION
  Report Type: Spontaneous
  Country: US (occurrence: None)
  Receive Date: 20140320
  Receipt Date: 20140320
  Transmission Date: 20141002
  Serious: Yes (Disabling)
  Sender: FDA-Public Use
  Company Number: None

PATIENT
  Age: 60 Year
  Sex: Male
  Weight: 81.65 kg

DRUGS (3)
  1. BACLOFEN [Suspect]
     Indication: HYPOTONIA
     Dosage: 10 MG 1/2 PILL 3 TIMES/DAY, ONE TABLET 3 TIMES/DAY, 3 TIMES/DAY, BY MOUTH
     Route: 048
     Dates: start: 20100729, end: 20100808
  2. BACLOFEN [Suspect]
     Dosage: 10 MG 1/2 PILL 3 TIMES/DAY, ONE TABLET 3 TIMES/DAY, 3 TIMES/DAY, BY MOUTH
     Route: 048
     Dates: start: 20100729, end: 20100808
  3. LISINOPRIL 10 MG TABLET [Concomitant]

REACTIONS (3)
  - Pain [None]
  - Paralysis [None]
  - Discomfort [None]
